FAERS Safety Report 18345682 (Version 1)
Quarter: 2020Q4

REPORT INFORMATION
  Report Type: Spontaneous
  Country: US (occurrence: US)
  Receive Date: 20201005
  Receipt Date: 20201005
  Transmission Date: 20210114
  Serious: Yes (Hospitalization, Other)
  Sender: FDA-Public Use
  Company Number: US-ASTRAZENECA-2020SF27382

PATIENT
  Age: 22923 Day
  Sex: Female
  Weight: 118.8 kg

DRUGS (37)
  1. FARXIGA [Suspect]
     Active Substance: DAPAGLIFLOZIN PROPANEDIOL
     Indication: BLOOD PRESSURE DECREASED
     Route: 048
     Dates: start: 20140725, end: 201502
  2. CYCLOBENZAPRINE. [Concomitant]
     Active Substance: CYCLOBENZAPRINE
  3. CRESTOR [Concomitant]
     Active Substance: ROSUVASTATIN CALCIUM
  4. PROGESTERONE. [Concomitant]
     Active Substance: PROGESTERONE
  5. MEROPENEM. [Concomitant]
     Active Substance: MEROPENEM
  6. NYSTATIN. [Concomitant]
     Active Substance: NYSTATIN
  7. EPIPEN [Concomitant]
     Active Substance: EPINEPHRINE
  8. FARXIGA [Suspect]
     Active Substance: DAPAGLIFLOZIN PROPANEDIOL
     Indication: BLOOD PRESSURE DECREASED
     Dosage: 5.0MG UNKNOWN
     Route: 048
     Dates: start: 20140820
  9. CEPHALEXIN. [Concomitant]
     Active Substance: CEPHALEXIN
  10. METHYLPREDNISOLONE. [Concomitant]
     Active Substance: METHYLPREDNISOLONE
  11. BUMETANIDE. [Concomitant]
     Active Substance: BUMETANIDE
  12. HUMALOG [Concomitant]
     Active Substance: INSULIN LISPRO
  13. ZOFRAN [Concomitant]
     Active Substance: ONDANSETRON HYDROCHLORIDE
  14. NEURONTIN [Concomitant]
     Active Substance: GABAPENTIN
  15. NOVOLOG [Concomitant]
     Active Substance: INSULIN ASPART
  16. FARXIGA [Suspect]
     Active Substance: DAPAGLIFLOZIN PROPANEDIOL
     Indication: TYPE 2 DIABETES MELLITUS
     Dosage: 5.0MG UNKNOWN
     Route: 048
     Dates: start: 20140820
  17. VITAMIN D [Concomitant]
     Active Substance: VITAMIN D NOS
  18. NIASPAN [Concomitant]
     Active Substance: NIACIN
  19. FENTANYL. [Concomitant]
     Active Substance: FENTANYL
  20. FARXIGA [Suspect]
     Active Substance: DAPAGLIFLOZIN PROPANEDIOL
     Indication: WEIGHT DECREASED
     Dosage: 5.0MG UNKNOWN
     Route: 048
     Dates: start: 20140820
  21. AMIODARONE [Concomitant]
     Active Substance: AMIODARONE
  22. FARXIGA [Suspect]
     Active Substance: DAPAGLIFLOZIN PROPANEDIOL
     Indication: WEIGHT DECREASED
     Route: 048
     Dates: start: 20140725, end: 201502
  23. OXYCODONE-ACETAMINOPHEN [Concomitant]
     Active Substance: ACETAMINOPHEN\OXYCODONE HYDROCHLORIDE
  24. ZYRTEC [Concomitant]
     Active Substance: CETIRIZINE HYDROCHLORIDE
  25. MIRALAX [Concomitant]
     Active Substance: POLYETHYLENE GLYCOL 3350
  26. MISOPROSTOL. [Concomitant]
     Active Substance: MISOPROSTOL
  27. METFORMIN [Concomitant]
     Active Substance: METFORMIN HYDROCHLORIDE
  28. VALSARTAN. [Concomitant]
     Active Substance: VALSARTAN
  29. POTASSIUM CHLORIDE. [Concomitant]
     Active Substance: POTASSIUM CHLORIDE
  30. MELOXICAM. [Concomitant]
     Active Substance: MELOXICAM
  31. ZETIA [Concomitant]
     Active Substance: EZETIMIBE
  32. SPIRONOLACTONE. [Concomitant]
     Active Substance: SPIRONOLACTONE
  33. SEROQUEL [Concomitant]
     Active Substance: QUETIAPINE FUMARATE
  34. FARXIGA [Suspect]
     Active Substance: DAPAGLIFLOZIN PROPANEDIOL
     Indication: TYPE 2 DIABETES MELLITUS
     Route: 048
     Dates: start: 20140725, end: 201502
  35. FLUCONAZOLE. [Concomitant]
     Active Substance: FLUCONAZOLE
  36. LANTUS [Concomitant]
     Active Substance: INSULIN GLARGINE
  37. ALBUTEROL. [Concomitant]
     Active Substance: ALBUTEROL

REACTIONS (13)
  - Septic shock [Unknown]
  - Muscular weakness [Unknown]
  - Abscess limb [Unknown]
  - Urinary tract infection [Unknown]
  - Pain [Unknown]
  - Scar [Unknown]
  - Sepsis [Unknown]
  - Necrotising fasciitis [Unknown]
  - Gait disturbance [Unknown]
  - Cellulitis [Unknown]
  - Back pain [Unknown]
  - Fournier^s gangrene [Unknown]
  - Perirectal abscess [Unknown]

NARRATIVE: CASE EVENT DATE: 20141209
